FAERS Safety Report 17243800 (Version 1)
Quarter: 2020Q1

REPORT INFORMATION
  Report Type: Spontaneous
  Country: US (occurrence: US)
  Receive Date: 20200107
  Receipt Date: 20200107
  Transmission Date: 20200409
  Serious: Yes (Death)
  Sender: FDA-Public Use
  Company Number: US-ROCHE-2421626

PATIENT
  Age: 74 Year
  Sex: Male
  Weight: 93 kg

DRUGS (10)
  1. KEPPRA [Concomitant]
     Active Substance: LEVETIRACETAM
  2. ACTIVASE [Suspect]
     Active Substance: ALTEPLASE
     Dosage: 75 DRIP OVER 1 HR AT 20.15
     Route: 041
     Dates: start: 20190904, end: 20190904
  3. PROPOFOL. [Concomitant]
     Active Substance: PROPOFOL
  4. MANNITOL. [Concomitant]
     Active Substance: MANNITOL
  5. ZEMURON [Concomitant]
     Active Substance: ROCURONIUM BROMIDE
  6. ACTIVASE [Suspect]
     Active Substance: ALTEPLASE
     Indication: CEREBROVASCULAR ACCIDENT
     Dosage: 8.37 BOLUS OVER 1 MIN AT 20.13
     Route: 040
     Dates: start: 20190904, end: 20190904
  7. AMICAR [Concomitant]
     Active Substance: AMINOCAPROIC ACID
  8. CARDENE [Concomitant]
     Active Substance: NICARDIPINE HYDROCHLORIDE
  9. ISOVUE 370 [Concomitant]
     Active Substance: IOPAMIDOL
  10. ATIVAN [Concomitant]
     Active Substance: LORAZEPAM

REACTIONS (1)
  - Haemorrhage intracranial [Fatal]

NARRATIVE: CASE EVENT DATE: 20190904
